FAERS Safety Report 9785557 (Version 3)
Quarter: 2014Q1

REPORT INFORMATION
  Report Type: Report from Study
  Country: JP (occurrence: JP)
  Receive Date: 20131227
  Receipt Date: 20140130
  Transmission Date: 20141002
  Serious: Yes (Other)
  Sender: FDA-Public Use
  Company Number: JP-ASTELLAS-2013JP009365

PATIENT
  Age: 37 Year
  Sex: Male
  Weight: 83 kg

DRUGS (11)
  1. TACROLIMUS CAPSULES [Suspect]
     Indication: LUPUS NEPHRITIS
     Dosage: 3 MG, UNKNOWN/D
     Route: 048
     Dates: start: 20071126, end: 20130729
  2. TACROLIMUS CAPSULES [Suspect]
     Dosage: 1.5 MG, UNKNOWN/D
     Route: 048
     Dates: start: 20070813, end: 20071125
  3. RINDERON                           /00008501/ [Concomitant]
     Indication: LUPUS NEPHRITIS
     Dosage: 1.25 MG, UNKNOWN/D
     Route: 048
  4. ENDOXAN-P [Concomitant]
     Indication: LUPUS NEPHRITIS
     Dosage: 500 MG, WEEKLY
     Route: 048
     Dates: end: 20070910
  5. ENDOXAN-P [Concomitant]
     Dosage: 50 MG, UID/QD
     Route: 048
     Dates: start: 20070911, end: 20071126
  6. ENDOXAN-P [Concomitant]
     Dosage: 150 MG, WEEKLY
     Route: 048
     Dates: start: 20071127, end: 20110417
  7. ENDOXAN-P [Concomitant]
     Dosage: 50 MG, UID/QD
     Route: 048
     Dates: start: 20110418
  8. SELBEX [Concomitant]
     Dosage: 150 MG, UNKNOWN/D
     Route: 048
  9. ALFAROL [Concomitant]
     Dosage: 1 UG, UID/QD
     Route: 048
  10. BONALON [Concomitant]
     Indication: OSTEOPOROSIS PROPHYLAXIS
     Dosage: UNK
     Route: 048
     Dates: start: 20080609
  11. BONALON [Concomitant]
     Dosage: 35 MG, WEEKLY
     Route: 048
     Dates: end: 20100222

REACTIONS (1)
  - Systemic lupus erythematosus [Not Recovered/Not Resolved]
